FAERS Safety Report 19659793 (Version 2)
Quarter: 2021Q4

REPORT INFORMATION
  Report Type: Report from Study
  Country: US (occurrence: US)
  Receive Date: 20210805
  Receipt Date: 20211028
  Transmission Date: 20220303
  Serious: Yes (Other)
  Sender: FDA-Public Use
  Company Number: US-SANOFI-00471653

PATIENT
  Age: 74 Year
  Sex: Male

DRUGS (8)
  1. DUPILUMAB [Suspect]
     Active Substance: DUPILUMAB
     Indication: Dermatitis atopic
     Dosage: 600 MG, 1X
     Route: 058
     Dates: start: 20210210, end: 20210210
  2. DUPILUMAB [Suspect]
     Active Substance: DUPILUMAB
     Indication: Eczema
     Dosage: 300 MG, QOW
     Route: 058
     Dates: start: 20210223, end: 2021
  3. DUPILUMAB [Suspect]
     Active Substance: DUPILUMAB
     Dosage: 300 MG, QOW
     Route: 058
     Dates: start: 2021, end: 20210519
  4. DUPILUMAB [Suspect]
     Active Substance: DUPILUMAB
     Dosage: 300 MG, Q15D
     Route: 058
  5. CLOBETASOL [Suspect]
     Active Substance: CLOBETASOL
     Indication: Swelling
     Dosage: QW
     Dates: start: 20210211
  6. CERAVE HEALING [Suspect]
     Active Substance: PETROLATUM
     Indication: Back pain
     Dosage: UNK
  7. CERAVE HEALING [Suspect]
     Active Substance: PETROLATUM
     Indication: Swelling
  8. COVID-19 VACCINE [Concomitant]
     Dosage: UNK
     Dates: start: 2021

REACTIONS (44)
  - Myalgia [Unknown]
  - Arthralgia [Unknown]
  - Rash [Unknown]
  - Infrequent bowel movements [Unknown]
  - Back pain [Unknown]
  - Eye swelling [Unknown]
  - Dark circles under eyes [Unknown]
  - Restlessness [Unknown]
  - Miliaria [Unknown]
  - Testicular mass [Unknown]
  - Sensitive skin [Unknown]
  - Skin mass [Unknown]
  - Scratch [Unknown]
  - Skin warm [Unknown]
  - Pruritus [Unknown]
  - Dry skin [Unknown]
  - Erythema [Unknown]
  - Feeling hot [Unknown]
  - Swelling [Unknown]
  - Application site pain [Unknown]
  - Rash macular [Unknown]
  - Dry eye [Unknown]
  - Product dose omission issue [Unknown]
  - Groin pain [Unknown]
  - Pain in extremity [Unknown]
  - Condition aggravated [Unknown]
  - Vision blurred [Unknown]
  - Dysphagia [Unknown]
  - Weight decreased [Unknown]
  - Pain [Unknown]
  - Oral herpes [Recovered/Resolved]
  - Pruritus [Unknown]
  - Throat clearing [Unknown]
  - Injection site pain [Recovered/Resolved]
  - Scab [Unknown]
  - Micturition urgency [Unknown]
  - Joint stiffness [Not Recovered/Not Resolved]
  - Condition aggravated [Not Recovered/Not Resolved]
  - Tenderness [Unknown]
  - Bone pain [Unknown]
  - Gait disturbance [Unknown]
  - Visual impairment [Unknown]
  - Therapeutic response unexpected [Unknown]
  - Inappropriate schedule of product administration [Unknown]

NARRATIVE: CASE EVENT DATE: 20210101
